FAERS Safety Report 25250078 (Version 2)
Quarter: 2025Q2

REPORT INFORMATION
  Report Type: Spontaneous
  Country: BR (occurrence: BR)
  Receive Date: 20250429
  Receipt Date: 20250507
  Transmission Date: 20250717
  Serious: Yes (Life-Threatening)
  Sender: SANDOZ
  Company Number: BR-002147023-NVSC2025BR068441

PATIENT

DRUGS (4)
  1. ANASTROZOLE [Suspect]
     Active Substance: ANASTROZOLE
     Indication: Product used for unknown indication
     Dosage: 1 MG, QD
     Route: 065
     Dates: start: 20230824
  2. KISQALI [Suspect]
     Active Substance: RIBOCICLIB SUCCINATE
     Dosage: 200 MG, QD
     Route: 065
     Dates: start: 20240123
  3. KISQALI [Suspect]
     Active Substance: RIBOCICLIB SUCCINATE
     Route: 065
  4. KISQALI [Suspect]
     Active Substance: RIBOCICLIB SUCCINATE
     Indication: Product used for unknown indication
     Route: 065
     Dates: start: 20230905

REACTIONS (3)
  - Neutropenia [Unknown]
  - Bone pain [Unknown]
  - Nausea [Unknown]
